FAERS Safety Report 18278218 (Version 6)
Quarter: 2021Q1

REPORT INFORMATION
  Report Type: Report from Study
  Country: US (occurrence: US)
  Receive Date: 20200917
  Receipt Date: 20210310
  Transmission Date: 20210419
  Serious: Yes (Other)
  Sender: FDA-Public Use
  Company Number: NVSC2020US252252

PATIENT
  Sex: Male

DRUGS (2)
  1. ENTRESTO [Suspect]
     Active Substance: SACUBITRIL\VALSARTAN
     Dosage: UNK
     Route: 065
     Dates: start: 20210115
  2. ENTRESTO [Suspect]
     Active Substance: SACUBITRIL\VALSARTAN
     Indication: PRODUCT USED FOR UNKNOWN INDICATION
     Dosage: 50 MG, BID (24/26 MG)
     Route: 048
     Dates: start: 20200817

REACTIONS (9)
  - Weight increased [Unknown]
  - Dyspnoea [Recovering/Resolving]
  - Hip fracture [Unknown]
  - Product distribution issue [Unknown]
  - Cough [Recovering/Resolving]
  - Weight decreased [Unknown]
  - Product dose omission issue [Unknown]
  - Atrial fibrillation [Not Recovered/Not Resolved]
  - Hypotension [Unknown]
